FAERS Safety Report 22261723 (Version 1)
Quarter: 2023Q2

REPORT INFORMATION
  Report Type: Report from Study
  Country: GB (occurrence: GB)
  Receive Date: 20230428
  Receipt Date: 20230428
  Transmission Date: 20230722
  Serious: Yes (Hospitalization, Other)
  Sender: FDA-Public Use
  Company Number: GB-ABBVIE-4743880

PATIENT
  Age: 62 Year
  Sex: Female
  Weight: 98 kg

DRUGS (14)
  1. SKYRIZI [Suspect]
     Active Substance: RISANKIZUMAB-RZAA
     Indication: Psoriasis
     Route: 058
     Dates: start: 20200402, end: 20230310
  2. MORPHINE SULFATE [Concomitant]
     Active Substance: MORPHINE SULFATE
     Indication: Product used for unknown indication
     Dates: start: 20230329
  3. OMEPRAZOLE [Concomitant]
     Active Substance: OMEPRAZOLE
     Indication: Product used for unknown indication
     Dates: start: 20110101
  4. ENSTILAR [Concomitant]
     Active Substance: BETAMETHASONE DIPROPIONATE\CALCIPOTRIENE HYDRATE
     Indication: Product used for unknown indication
     Dates: start: 20190307
  5. METOCLOPRAMIDE [Concomitant]
     Active Substance: METOCLOPRAMIDE
     Indication: Product used for unknown indication
     Dates: start: 20230316
  6. CLOBETASOL [Concomitant]
     Active Substance: CLOBETASOL
     Indication: Product used for unknown indication
     Dates: start: 20190307
  7. CITALOPRAM [Concomitant]
     Active Substance: CITALOPRAM HYDROBROMIDE
     Indication: Product used for unknown indication
     Dates: start: 20140101
  8. URSODIOL [Concomitant]
     Active Substance: URSODIOL
     Indication: Product used for unknown indication
     Dates: start: 20230316
  9. HALOPERIDOL [Concomitant]
     Active Substance: HALOPERIDOL
     Indication: Product used for unknown indication
     Dates: start: 20230328
  10. METHOTREXATE [Concomitant]
     Active Substance: METHOTREXATE
     Indication: Product used for unknown indication
     Dates: start: 20180405
  11. RAMIPRIL [Concomitant]
     Active Substance: RAMIPRIL
     Indication: Product used for unknown indication
     Dates: start: 20110101
  12. GABAPENTIN [Concomitant]
     Active Substance: GABAPENTIN
     Indication: Product used for unknown indication
     Dates: start: 20000101
  13. MORPHINE SULFATE [Concomitant]
     Active Substance: MORPHINE SULFATE
     Indication: Product used for unknown indication
     Dates: start: 20230329
  14. Oilatum [Concomitant]
     Indication: Product used for unknown indication
     Dates: start: 20220201

REACTIONS (6)
  - Cholangiocarcinoma [Not Recovered/Not Resolved]
  - Liver function test abnormal [Not Recovered/Not Resolved]
  - Abdominal pain [Not Recovered/Not Resolved]
  - Pharyngeal lesion [Not Recovered/Not Resolved]
  - Hepatic mass [Not Recovered/Not Resolved]
  - Hepatic cancer [Not Recovered/Not Resolved]

NARRATIVE: CASE EVENT DATE: 20230126
